FAERS Safety Report 16936463 (Version 1)
Quarter: 2019Q4

REPORT INFORMATION
  Report Type: Spontaneous
  Country: US (occurrence: US)
  Receive Date: 20190827
  Receipt Date: 20190827
  Transmission Date: 20200122
  Serious: Yes (Other)
  Sender: FDA-Public Use
  Company Number: None

PATIENT
  Age: 56 Year
  Sex: Male
  Weight: .42 kg

DRUGS (1)
  1. XGEVA [Suspect]
     Active Substance: DENOSUMAB
     Indication: HODGKIN^S DISEASE
     Dosage: ?          OTHER DOSE:120MG/1.7ML VIAL;?
     Route: 058
     Dates: start: 20181021, end: 20190819

REACTIONS (6)
  - Penile pain [None]
  - Feeling hot [None]
  - Penile erythema [None]
  - Hypoaesthesia [None]
  - Penile discharge [None]
  - Skin disorder [None]

NARRATIVE: CASE EVENT DATE: 20190601
